FAERS Safety Report 6304684-2 (Version None)
Quarter: 2009Q3

REPORT INFORMATION
  Report Type: 
  Country: None (occurrence: None)
  Receive Date: 20090806
  Receipt Date: 20090724
  Transmission Date: 20100115
  Serious: Yes (Hospitalization, Other)
  Sender: FDA-Public Use
  Company Number: MC200900232

PATIENT
  Age: 52 Year

DRUGS (15)
  1. ANGIOMAX [Suspect]
     Indication: STENT PLACEMENT
     Dosage: SEE IMAGE
     Route: 042
  2. ASPIRIN [Concomitant]
  3. PLAVIX [Concomitant]
  4. METOPROLOL SUCCINATE [Concomitant]
  5. LIPITOR [Concomitant]
  6. RAMIPRIL [Concomitant]
  7. FOLIC ACID [Concomitant]
  8. METHOTREXATE [Concomitant]
  9. APO-HYDROXYQUINE (HYDROXYCHLOROQUINE SULFATE) [Concomitant]
  10. XYLOCAINE /00033401/ (LIDOCAINE) .2% [Concomitant]
  11. FENTANYL-100 [Concomitant]
  12. ATROPINE [Concomitant]
  13. EPINEPHRINE [Concomitant]
  14. VERSED [Concomitant]
  15. SODIUM BICARBONATE IN PLASTIC CONTAINER [Concomitant]

REACTIONS (2)
  - CORONARY ARTERY PERFORATION [None]
  - THROMBOSIS [None]
